FAERS Safety Report 8493049-3 (Version None)
Quarter: 2012Q3

REPORT INFORMATION
  Report Type: 
  Country: None (occurrence: None)
  Receive Date: 20120706
  Receipt Date: 20120704
  Transmission Date: 20120928
  Serious: Yes (Life-Threatening, Hospitalization, Other)
  Sender: FDA-Public Use
  Company Number: JP-ROCHE-634036

PATIENT
  Sex: Female
  Weight: 59 kg

DRUGS (11)
  1. RHEUMATREX [Concomitant]
     Dosage: NOTE: 4 MG, 42 MG
     Route: 048
  2. ACTEMRA [Suspect]
     Indication: RHEUMATOID ARTHRITIS
     Route: 041
     Dates: start: 20090129, end: 20090129
  3. PREDNISOLONE AND PREDNISOLONE ACETATE AND PREDNISOLONE SODIUM SUCCINAT [Suspect]
     Indication: RHEUMATOID ARTHRITIS
     Route: 048
  4. VANCOMYCIN [Suspect]
     Indication: RHEUMATOID ARTHRITIS
     Route: 041
  5. RIMATIL [Concomitant]
     Route: 048
  6. ACTEMRA [Suspect]
     Route: 041
     Dates: start: 20090324, end: 20090324
  7. CYTOTEC [Concomitant]
     Route: 048
  8. ACTEMRA [Suspect]
     Route: 041
     Dates: start: 20090224, end: 20090224
  9. PREDNISOLONE AND PREDNISOLONE ACETATE AND PREDNISOLONE SODIUM SUCCINAT [Suspect]
     Route: 048
  10. CELECOXIB [Concomitant]
     Dosage: DRUG NAME: CELECOX
     Route: 048
  11. METHOTREXATE [Concomitant]
     Route: 048

REACTIONS (9)
  - CEREBRAL INFARCTION [None]
  - ABSCESS LIMB [None]
  - ENDOCARDITIS [None]
  - SKIN ULCER [None]
  - SEPSIS [None]
  - RED BLOOD CELL COUNT DECREASED [None]
  - PNEUMONIA BACTERIAL [None]
  - ARTHRITIS BACTERIAL [None]
  - PLATELET COUNT DECREASED [None]
